FAERS Safety Report 17852486 (Version 3)
Quarter: 2020Q2

REPORT INFORMATION
  Report Type: Report from Study
  Country: None (occurrence: US)
  Receive Date: 20200603
  Receipt Date: 20200615
  Transmission Date: 20200714
  Serious: Yes (Hospitalization)
  Sender: FDA-Public Use
  Company Number: US-ABBVIE-20K-163-3284823-00

PATIENT
  Age: 69 Year
  Sex: Male
  Weight: 90.8 kg

DRUGS (5)
  1. ALLOPURINOL. [Concomitant]
     Active Substance: ALLOPURINOL
     Indication: PRODUCT USED FOR UNKNOWN INDICATION
  2. IMBRUVICA [Suspect]
     Active Substance: IBRUTINIB
     Route: 048
     Dates: start: 202002, end: 202005
  3. IMBRUVICA [Suspect]
     Active Substance: IBRUTINIB
     Indication: CHRONIC LYMPHOCYTIC LEUKAEMIA
     Route: 048
     Dates: start: 20200205, end: 20200507
  4. PANTOPRAZOLE SODIUM. [Concomitant]
     Active Substance: PANTOPRAZOLE SODIUM
     Indication: PRODUCT USED FOR UNKNOWN INDICATION
  5. IMBRUVICA [Suspect]
     Active Substance: IBRUTINIB
     Route: 048
     Dates: start: 20200603

REACTIONS (8)
  - Pyrexia [Recovered/Resolved]
  - Blood pressure increased [Recovering/Resolving]
  - Hepatic enzyme increased [Unknown]
  - Immunodeficiency [Unknown]
  - Arthralgia [Unknown]
  - Heart rate increased [Recovering/Resolving]
  - Blood pressure increased [Recovered/Resolved]
  - Blood pressure systolic abnormal [Recovering/Resolving]

NARRATIVE: CASE EVENT DATE: 2020
